FAERS Safety Report 9198676 (Version 1)
Quarter: 2013Q1

REPORT INFORMATION
  Report Type: Spontaneous
  Country: US (occurrence: US)
  Receive Date: 20130329
  Receipt Date: 20130329
  Transmission Date: 20140127
  Serious: Yes (Death, Other)
  Sender: FDA-Public Use
  Company Number: US-TEVA-394660USA

PATIENT
  Sex: Male

DRUGS (2)
  1. WARFARIN [Suspect]
  2. AZITHROMYCIN [Interacting]

REACTIONS (3)
  - Drug interaction [Fatal]
  - Haemorrhage [Fatal]
  - International normalised ratio abnormal [Fatal]
